FAERS Safety Report 10186465 (Version 1)
Quarter: 2014Q2

REPORT INFORMATION
  Report Type: Spontaneous
  Country: US (occurrence: US)
  Receive Date: 20140521
  Receipt Date: 20140521
  Transmission Date: 20141212
  Serious: Yes (Death, Congenital Anomaly)
  Sender: FDA-Public Use
  Company Number: US-ACTAVIS-2014-10650

PATIENT
  Sex: 0

DRUGS (4)
  1. PARACETAMOL  (UNKNOWN) [Suspect]
     Indication: TOOTHACHE
     Dosage: 6 G, DAILY
     Route: 064
  2. TACROLIMUS (WATSON LABORATORIES) [Suspect]
     Indication: IMMUNOSUPPRESSANT DRUG THERAPY
     Dosage: UNK
     Route: 064
  3. PREDNISONE (WATSON LABORATORIES) [Suspect]
     Indication: IMMUNOSUPPRESSANT DRUG THERAPY
     Dosage: HIGH-DOSE
     Route: 064
  4. SOLUMEDROL [Suspect]
     Indication: IMMUNOSUPPRESSANT DRUG THERAPY
     Dosage: UNK
     Route: 064

REACTIONS (4)
  - Liver injury [Fatal]
  - Congenital hydrocephalus [Fatal]
  - Accidental overdose [Fatal]
  - Foetal exposure during pregnancy [Fatal]
